FAERS Safety Report 7887768-7 (Version None)
Quarter: 2011Q4

REPORT INFORMATION
  Report Type: 
  Country: None (occurrence: None)
  Receive Date: 20111101
  Receipt Date: 20111018
  Transmission Date: 20120403
  Serious: Yes (Life-Threatening, Other)
  Sender: FDA-Public Use
  Company Number: TCI2011A05265

PATIENT
  Age: 70 Year
  Sex: Male

DRUGS (14)
  1. ACLACINON (ACLARUBICIN HYDROCHLORIDE) [Suspect]
     Indication: ACUTE MYELOID LEUKAEMIA
     Dosage: 14 MG/M2 (14 MG/M2, 1 IN 1 D), 40 MG (40 MG, 1 IN 1 D), INTRAVENOUS
     Route: 042
     Dates: start: 20100105, end: 20100118
  2. ACLACINON (ACLARUBICIN HYDROCHLORIDE) [Suspect]
     Indication: ACUTE MYELOID LEUKAEMIA
     Dosage: 14 MG/M2 (14 MG/M2, 1 IN 1 D), 40 MG (40 MG, 1 IN 1 D), INTRAVENOUS
     Route: 042
     Dates: start: 20091201
  3. MEROPENEM [Concomitant]
  4. ACETAMINOPHEN [Concomitant]
  5. SUCRALFATE [Concomitant]
  6. SODIUM ALGINATE [Concomitant]
  7. CYTARABINE [Concomitant]
  8. VANCOMYCIN HYCHLORIDE [Concomitant]
  9. RAMOSETRON HYDROCHLORIDE [Concomitant]
  10. CEFEPIME HYDROCHLORIDE [Concomitant]
  11. LANSOPRAZOLE [Suspect]
     Indication: PRODUCT USED FOR UNKNOWN INDICATION
     Dosage: 30 MG (30 MG, 1 IN 1 D), PER ORAL
     Route: 048
     Dates: start: 20100101
  12. VFEND [Suspect]
     Indication: BRONCHOPULMONARY ASPERGILLOSIS
     Dosage: 400 MG (200 MG, 2 IN 1 D), 400 MG (200 MG, 2 IN 1 D), PER ORAL
     Route: 048
     Dates: start: 20091216, end: 20100111
  13. VFEND [Suspect]
     Indication: BRONCHOPULMONARY ASPERGILLOSIS
     Dosage: 400 MG (200 MG, 2 IN 1 D), 400 MG (200 MG, 2 IN 1 D), PER ORAL
     Route: 048
     Dates: start: 20100113, end: 20100115
  14. MAGNESIUM OXIDE [Concomitant]

REACTIONS (13)
  - LOSS OF CONSCIOUSNESS [None]
  - HYPOMAGNESAEMIA [None]
  - VENTRICULAR FIBRILLATION [None]
  - VENTRICULAR EXTRASYSTOLES [None]
  - DRUG INTERACTION [None]
  - VENTRICULAR TACHYCARDIA [None]
  - TORSADE DE POINTES [None]
  - CARDIAC ARREST [None]
  - EXTRASYSTOLES [None]
  - ELECTROCARDIOGRAM R ON T PHENOMENON [None]
  - ELECTROCARDIOGRAM QT PROLONGED [None]
  - BRONCHOPULMONARY ASPERGILLOSIS [None]
  - CONDITION AGGRAVATED [None]
